FAERS Safety Report 5736247-1 (Version None)
Quarter: 2008Q2

REPORT INFORMATION
  Report Type: 
  Country: None (occurrence: None)
  Receive Date: 20080513
  Receipt Date: 20080507
  Transmission Date: 20081010
  Serious: Yes (Other)
  Sender: FDA-Public Use
  Company Number: US-MERCK-0805USA01808

PATIENT
  Age: 12 Year
  Sex: Male

DRUGS (5)
  1. SINGULAIR [Suspect]
     Route: 048
     Dates: end: 20080401
  2. MAXAIR [Concomitant]
     Route: 065
  3. ALBUTEROL [Concomitant]
     Route: 065
  4. CLARITIN [Concomitant]
     Route: 065
  5. BENADRYL [Concomitant]
     Route: 065

REACTIONS (2)
  - SUICIDAL IDEATION [None]
  - WRONG TECHNIQUE IN DRUG USAGE PROCESS [None]
